FAERS Safety Report 17998393 (Version 1)
Quarter: 2020Q3

REPORT INFORMATION
  Report Type: Spontaneous
  Country: US (occurrence: US)
  Receive Date: 20200708
  Receipt Date: 20200708
  Transmission Date: 20201103
  Serious: Yes (Hospitalization)
  Sender: FDA-Public Use
  Company Number: None

PATIENT
  Age: 75 Year
  Sex: Male

DRUGS (19)
  1. CLOPIDOGREL [Concomitant]
     Active Substance: CLOPIDOGREL BISULFATE
  2. LORAZEPAM. [Concomitant]
     Active Substance: LORAZEPAM
  3. ZAFIRLUKAST. [Concomitant]
     Active Substance: ZAFIRLUKAST
  4. LIDOCAINE. [Concomitant]
     Active Substance: LIDOCAINE
  5. NUCALA [Concomitant]
     Active Substance: MEPOLIZUMAB
  6. AMOX/K CLAV [Concomitant]
     Active Substance: AMOXICILLIN\CLAVULANATE POTASSIUM
  7. BUDESONIDE. [Concomitant]
     Active Substance: BUDESONIDE
  8. HYDROXYZ HCL [Concomitant]
     Active Substance: HYDROXYZINE HYDROCHLORIDE
  9. METOPROL TAR [Concomitant]
  10. TOBI [Suspect]
     Active Substance: TOBRAMYCIN
     Indication: ASTHMA
     Dosage: 28 D ON ? 28 D OFF
     Route: 055
     Dates: start: 20200519
  11. DIAZEPAM. [Concomitant]
     Active Substance: DIAZEPAM
  12. METHOCARBAM [Concomitant]
     Active Substance: METHOCARBAMOL
  13. ATROVASTATIN [Concomitant]
     Active Substance: ATORVASTATIN CALCIUM
  14. CEFUROXIME. [Concomitant]
     Active Substance: CEFUROXIME
  15. CYCLOBENZAPR [Concomitant]
     Active Substance: CYCLOBENZAPRINE
  16. BROM/PSE/DM [Concomitant]
  17. HYDROMORPHON [Concomitant]
     Active Substance: HYDROMORPHONE
  18. METAXALONE. [Concomitant]
     Active Substance: METAXALONE
  19. PREDNISONE. [Concomitant]
     Active Substance: PREDNISONE

REACTIONS (1)
  - Spinal operation [None]

NARRATIVE: CASE EVENT DATE: 20200607
